FAERS Safety Report 8044358-3 (Version None)
Quarter: 2012Q1

REPORT INFORMATION
  Report Type: 
  Country: None (occurrence: None)
  Receive Date: 20120113
  Receipt Date: 20120104
  Transmission Date: 20120608
  Serious: Yes (Life-Threatening, Other)
  Sender: FDA-Public Use
  Company Number: US-MYLANLABS-2012S1000204

PATIENT
  Sex: Male

DRUGS (1)
  1. FENTANYL-100 [Suspect]
     Indication: CHEST PAIN
     Dosage: CHANGED Q72H
     Route: 062
     Dates: start: 20100101

REACTIONS (7)
  - HAEMATEMESIS [None]
  - MEMORY IMPAIRMENT [None]
  - SUICIDE ATTEMPT [None]
  - MENTAL STATUS CHANGES [None]
  - DIARRHOEA HAEMORRHAGIC [None]
  - SUICIDAL IDEATION [None]
  - DRUG ABUSE [None]
